FAERS Safety Report 18169843 (Version 1)
Quarter: 2020Q3

REPORT INFORMATION
  Report Type: Spontaneous
  Country: JP (occurrence: JP)
  Receive Date: 20200819
  Receipt Date: 20200819
  Transmission Date: 20201103
  Serious: Yes (Other)
  Sender: FDA-Public Use
  Company Number: JP-SHIRE-JP202026630

PATIENT
  Age: 3 Year
  Sex: Male

DRUGS (9)
  1. ADVATE [Suspect]
     Active Substance: ANTIHEMOPHILIC FACTOR, HUMAN RECOMBINANT
     Indication: SUBGALEAL HAEMORRHAGE
     Dosage: 40 INTERNATIONAL UNIT/KILOGRAM (500IU)
     Route: 042
     Dates: start: 20200814, end: 20200814
  2. ADVATE [Suspect]
     Active Substance: ANTIHEMOPHILIC FACTOR, HUMAN RECOMBINANT
     Indication: SUBGALEAL HAEMATOMA
  3. ADVATE [Suspect]
     Active Substance: ANTIHEMOPHILIC FACTOR, HUMAN RECOMBINANT
     Indication: SUBGALEAL HAEMATOMA
  4. ADVATE [Suspect]
     Active Substance: ANTIHEMOPHILIC FACTOR, HUMAN RECOMBINANT
     Indication: SUBGALEAL HAEMORRHAGE
     Dosage: 40 INTERNATIONAL UNIT/KILOGRAM (500IU)
     Route: 042
     Dates: start: 20200814, end: 20200814
  5. ADVATE [Suspect]
     Active Substance: ANTIHEMOPHILIC FACTOR, HUMAN RECOMBINANT
     Indication: HAEMOSTASIS
     Dosage: 40 INTERNATIONAL UNIT/KILOGRAM (500IU)
     Route: 042
     Dates: start: 20200814, end: 20200814
  6. ADVATE [Suspect]
     Active Substance: ANTIHEMOPHILIC FACTOR, HUMAN RECOMBINANT
     Indication: HAEMOSTASIS
     Dosage: 40 INTERNATIONAL UNIT/KILOGRAM (500IU)
     Route: 042
     Dates: start: 20200814, end: 20200814
  7. ADVATE [Suspect]
     Active Substance: ANTIHEMOPHILIC FACTOR, HUMAN RECOMBINANT
     Indication: SUBGALEAL HAEMATOMA
  8. ADVATE [Suspect]
     Active Substance: ANTIHEMOPHILIC FACTOR, HUMAN RECOMBINANT
     Indication: SUBGALEAL HAEMORRHAGE
     Dosage: 40 INTERNATIONAL UNIT/KILOGRAM (500IU)
     Route: 042
     Dates: start: 20200814, end: 20200814
  9. ADVATE [Suspect]
     Active Substance: ANTIHEMOPHILIC FACTOR, HUMAN RECOMBINANT
     Indication: HAEMOSTASIS
     Dosage: 40 INTERNATIONAL UNIT/KILOGRAM (500IU)
     Route: 042
     Dates: start: 20200814, end: 20200814

REACTIONS (1)
  - Therapeutic product effect incomplete [Not Recovered/Not Resolved]

NARRATIVE: CASE EVENT DATE: 20200814
